FAERS Safety Report 8280785-7 (Version None)
Quarter: 2012Q2

REPORT INFORMATION
  Report Type: 
  Country: None (occurrence: None)
  Receive Date: 20120412
  Receipt Date: 20120404
  Transmission Date: 20120825
  Serious: Yes (Life-Threatening)
  Sender: FDA-Public Use
  Company Number: CA-ABBOTT-12P-028-0921936-00

PATIENT
  Sex: Female

DRUGS (2)
  1. UNKNOWN MEDICATION [Suspect]
     Indication: PRODUCT USED FOR UNKNOWN INDICATION
  2. HUMIRA [Suspect]
     Indication: ANKYLOSING SPONDYLITIS
     Dosage: UNSPECIFIED
     Route: 058
     Dates: start: 20120224

REACTIONS (3)
  - SUICIDE ATTEMPT [None]
  - PHYSICAL ASSAULT [None]
  - INCOHERENT [None]
